FAERS Safety Report 19648609 (Version 2)
Quarter: 2021Q3

REPORT INFORMATION
  Report Type: Report from Study
  Country: None (occurrence: BR)
  Receive Date: 20210803
  Receipt Date: 20210901
  Transmission Date: 20211014
  Serious: Yes (Disabling)
  Sender: FDA-Public Use
  Company Number: BR-ABBVIE-21K-020-4013641-00

PATIENT
  Age: 52 Year
  Sex: Female
  Weight: 106 kg

DRUGS (2)
  1. HUMIRA [Suspect]
     Active Substance: ADALIMUMAB
     Indication: RHEUMATOID ARTHRITIS
     Route: 058
     Dates: start: 20130620, end: 202012
  2. HUMIRA [Suspect]
     Active Substance: ADALIMUMAB
     Route: 058
     Dates: start: 202104

REACTIONS (16)
  - Asthenia [Recovering/Resolving]
  - Insomnia [Recovered/Resolved]
  - Rheumatoid arthritis [Recovered/Resolved]
  - Loss of personal independence in daily activities [Recovered/Resolved]
  - Cognitive disorder [Unknown]
  - Blood cholesterol increased [Not Recovered/Not Resolved]
  - Alopecia [Not Recovered/Not Resolved]
  - Bedridden [Recovered/Resolved]
  - Weight increased [Not Recovered/Not Resolved]
  - Amnesia [Not Recovered/Not Resolved]
  - Arthralgia [Unknown]
  - Pain in extremity [Recovered/Resolved]
  - Grip strength decreased [Recovered/Resolved]
  - Hypophagia [Recovered/Resolved]
  - Grip strength decreased [Unknown]
  - COVID-19 [Recovered/Resolved]

NARRATIVE: CASE EVENT DATE: 20210228
